FAERS Safety Report 5573951-2 (Version None)
Quarter: 2007Q4

REPORT INFORMATION
  Report Type: 
  Country: None (occurrence: None)
  Receive Date: 20071220
  Receipt Date: 20071206
  Transmission Date: 20080405
  Serious: Yes (Death, Other)
  Sender: FDA-Public Use
  Company Number: 071127-0001306

PATIENT
  Sex: Female

DRUGS (3)
  1. INDOCIN I.V. [Suspect]
     Indication: PATENT DUCTUS ARTERIOSUS
     Dosage: 0.1 MG/KG; BID; IV, 0.2 MG/KG; BID; IV
     Route: 042
     Dates: end: 20071114
  2. INDOCIN I.V. [Suspect]
     Indication: PATENT DUCTUS ARTERIOSUS
     Dosage: 0.1 MG/KG; BID; IV, 0.2 MG/KG; BID; IV
     Route: 042
     Dates: start: 20071111
  3. SURFACTANT [Concomitant]

REACTIONS (5)
  - ANAEMIA [None]
  - GASTROINTESTINAL PERFORATION [None]
  - HYPOTENSION [None]
  - INTRAVENTRICULAR HAEMORRHAGE [None]
  - METABOLIC ACIDOSIS [None]
